FAERS Safety Report 7071166-2 (Version None)
Quarter: 2010Q4

REPORT INFORMATION
  Report Type: 
  Country: None (occurrence: None)
  Receive Date: 20101029
  Receipt Date: 20101018
  Transmission Date: 20110411
  Serious: Yes (Hospitalization, Other)
  Sender: FDA-Public Use
  Company Number: IE-MEDIMMUNE-MEDI-0009787

PATIENT
  Sex: Male
  Weight: 8.14 kg

DRUGS (14)
  1. SYNAGIS [Suspect]
     Route: 030
     Dates: start: 20091014, end: 20091014
  2. SYNAGIS [Suspect]
     Route: 030
     Dates: start: 20091130, end: 20091130
  3. ATROVENT AND SALBUTAMOL [Suspect]
     Dates: start: 20091128, end: 20091129
  4. BECLOMETASONE DIPROPIONATE [Concomitant]
     Route: 055
     Dates: start: 20090701
  5. BECLOMETASONE DIPROPIONATE [Concomitant]
     Route: 055
     Dates: start: 20091128, end: 20091129
  6. BECLOMETASONE DIPROPIONATE [Concomitant]
     Route: 055
     Dates: start: 20091130
  7. OMEPRAZOLE [Concomitant]
     Route: 048
     Dates: start: 20090701
  8. IPRATROPIUM BROMIDE [Concomitant]
     Route: 055
     Dates: start: 20090623
  9. IPRATROPIUM BROMIDE [Concomitant]
     Route: 055
     Dates: start: 20090728
  10. IPRATROPIUM BROMIDE [Concomitant]
     Route: 055
     Dates: start: 20091130
  11. GAVISCON [Concomitant]
     Route: 048
  12. AUGMENTIN '125' [Concomitant]
     Route: 042
     Dates: start: 20090623
  13. SALBUTAMOL [Concomitant]
     Dates: start: 20091130
  14. INFLUENZA VIRUS VACCINE MONOVALENT [Concomitant]
     Dates: start: 20091130

REACTIONS (2)
  - LOWER RESPIRATORY TRACT INFECTION [None]
  - WHEEZING [None]
